FAERS Safety Report 6762310-2 (Version None)
Quarter: 2010Q2

REPORT INFORMATION
  Report Type: 
  Country: None (occurrence: None)
  Receive Date: 20100511
  Receipt Date: 20100425
  Transmission Date: 20101027
  Serious: Yes (Other)
  Sender: FDA-Public Use
  Company Number: OMX-2010-00036

PATIENT
  Sex: 0

DRUGS (1)
  1. EVICEL [Suspect]
     Indication: SURGERY

REACTIONS (5)
  - ANAPHYLACTIC SHOCK [None]
  - CARDIO-RESPIRATORY ARREST [None]
  - OFF LABEL USE [None]
  - POST PROCEDURAL COMPLICATION [None]
  - TYPE I HYPERSENSITIVITY [None]
